FAERS Safety Report 5805116-0 (Version None)
Quarter: 2008Q3

REPORT INFORMATION
  Report Type: 
  Country: None (occurrence: None)
  Receive Date: 20080707
  Receipt Date: 20080630
  Transmission Date: 20090109
  Serious: Yes (Death, Hospitalization, Other)
  Sender: FDA-Public Use
  Company Number: 163-21880-08030730

PATIENT
  Age: 84 Year
  Sex: Female

DRUGS (4)
  1. REVLIMID [Suspect]
     Indication: MULTIPLE MYELOMA
     Dosage: X21 DAYS EVERY 28 DAYS, ORAL; EVERY 2 TO 3 DAYS, ORAL
     Route: 048
     Dates: start: 20061206, end: 20070301
  2. REVLIMID [Suspect]
     Indication: MYELODYSPLASTIC SYNDROME
     Dosage: X21 DAYS EVERY 28 DAYS, ORAL; EVERY 2 TO 3 DAYS, ORAL
     Route: 048
     Dates: start: 20061206, end: 20070301
  3. REVLIMID [Suspect]
     Indication: MULTIPLE MYELOMA
     Dosage: X21 DAYS EVERY 28 DAYS, ORAL; EVERY 2 TO 3 DAYS, ORAL
     Route: 048
     Dates: start: 20070817, end: 20071231
  4. REVLIMID [Suspect]
     Indication: MYELODYSPLASTIC SYNDROME
     Dosage: X21 DAYS EVERY 28 DAYS, ORAL; EVERY 2 TO 3 DAYS, ORAL
     Route: 048
     Dates: start: 20070817, end: 20071231

REACTIONS (7)
  - CARDIO-RESPIRATORY ARREST [None]
  - DISEASE PROGRESSION [None]
  - FEMUR FRACTURE [None]
  - MULTIPLE MYELOMA [None]
  - MYELODYSPLASTIC SYNDROME [None]
  - PATHOLOGICAL FRACTURE [None]
  - RENAL FAILURE [None]
